FAERS Safety Report 8225380-0 (Version None)
Quarter: 2012Q1

REPORT INFORMATION
  Report Type: 
  Country: None (occurrence: None)
  Receive Date: 20120321
  Receipt Date: 20120309
  Transmission Date: 20120608
  Serious: Yes (Other)
  Sender: FDA-Public Use
  Company Number: US-SANOFI-AVENTIS-2012SA009620

PATIENT
  Age: 80 Year
  Sex: Male
  Weight: 88.9 kg

DRUGS (6)
  1. ATORVASTATIN [Concomitant]
  2. MULTIVITAMIN [Concomitant]
  3. VITAMIN B-12 [Concomitant]
  4. VITAMIN B6 [Concomitant]
  5. PRILOSEC [Concomitant]
  6. ELIGARD [Suspect]
     Indication: PROSTATE CANCER
     Dosage: 4 MONTH INJECTION
     Dates: start: 20110531

REACTIONS (1)
  - PHIMOSIS [None]
